FAERS Safety Report 8551132-8 (Version None)
Quarter: 2012Q3

REPORT INFORMATION
  Report Type: 
  Country: None (occurrence: None)
  Receive Date: 20120730
  Receipt Date: 20110830
  Transmission Date: 20120928
  Serious: No
  Sender: FDA-Public Use
  Company Number: US-ALLERGAN-1111592US

PATIENT
  Sex: Female

DRUGS (2)
  1. LUMIGAN [Suspect]
     Indication: GLAUCOMA
     Dosage: 2 GTT, QHS
     Route: 047
  2. LUMIGAN [Suspect]
     Dosage: 2 GTT, QHS
     Route: 047
     Dates: start: 20110823

REACTIONS (6)
  - EYE DISCHARGE [None]
  - ABNORMAL SENSATION IN EYE [None]
  - EYELIDS PRURITUS [None]
  - EYE PRURITUS [None]
  - VISION BLURRED [None]
  - HEADACHE [None]
